FAERS Safety Report 19361225 (Version 1)
Quarter: 2021Q2

REPORT INFORMATION
  Report Type: Spontaneous
  Country: US (occurrence: US)
  Receive Date: 20210601
  Receipt Date: 20210601
  Transmission Date: 20210717
  Serious: Yes (Disabling, Other)
  Sender: FDA-Public Use
  Company Number: US-SA-2021SA178934

PATIENT

DRUGS (1)
  1. ZANTAC [Suspect]
     Active Substance: RANITIDINE HYDROCHLORIDE

REACTIONS (6)
  - Anxiety [Unknown]
  - Disability [Unknown]
  - Injury [Unknown]
  - Neoplasm malignant [Unknown]
  - Pain [Unknown]
  - Anhedonia [Unknown]
